FAERS Safety Report 8565527-X (Version None)
Quarter: 2012Q3

REPORT INFORMATION
  Report Type: 
  Country: None (occurrence: None)
  Receive Date: 20120803
  Receipt Date: 20120731
  Transmission Date: 20120928
  Serious: No
  Sender: FDA-Public Use
  Company Number: US-TEVA-351597USA

PATIENT
  Sex: Female
  Weight: 56.75 kg

DRUGS (2)
  1. TINESTA [Concomitant]
     Indication: CONTRACEPTION
  2. PLAN B ONE-STEP [Suspect]
     Indication: POST COITAL CONTRACEPTION
     Dosage: 1.5 MILLIGRAM;
     Route: 048
     Dates: start: 20120711, end: 20120711

REACTIONS (2)
  - MENSTRUATION IRREGULAR [None]
  - MENORRHAGIA [None]
